FAERS Safety Report 9216929 (Version 1)
Quarter: 2013Q2

REPORT INFORMATION
  Report Type: Spontaneous
  Country: US (occurrence: US)
  Receive Date: 20130408
  Receipt Date: 20130408
  Transmission Date: 20140414
  Serious: No
  Sender: FDA-Public Use
  Company Number: US-GLAXOSMITHKLINE-A1012483A

PATIENT
  Sex: Female

DRUGS (1)
  1. POTIGA [Suspect]
     Indication: EPILEPSY
     Dosage: 50MG THREE TIMES PER DAY
     Route: 048

REACTIONS (1)
  - Paraesthesia [Unknown]
